FAERS Safety Report 6205222-5 (Version None)
Quarter: 2009Q2

REPORT INFORMATION
  Report Type: 
  Country: None (occurrence: None)
  Receive Date: 20090527
  Receipt Date: 20090303
  Transmission Date: 20091009
  Serious: No
  Sender: FDA-Public Use
  Company Number: US-ABBOTT-09P-163-0560512-00

PATIENT
  Sex: Male
  Weight: 131.66 kg

DRUGS (8)
  1. SIMCOR [Suspect]
     Indication: BLOOD CHOLESTEROL INCREASED
     Dosage: 500MG/20MG AT BEDTIME
     Route: 048
     Dates: start: 20090201
  2. SIMCOR [Suspect]
     Indication: BLOOD TRIGLYCERIDES INCREASED
  3. ZIAC [Concomitant]
     Indication: HYPERTENSION
     Route: 048
  4. SOMA [Concomitant]
     Indication: MUSCLE SPASMS
  5. ASPIRIN [Concomitant]
     Indication: PROPHYLAXIS
     Route: 048
  6. BENADRYL [Concomitant]
     Indication: PROPHYLAXIS
     Route: 048
  7. TETRABENAZINE [Concomitant]
     Indication: BLEPHAROSPASM
  8. VITAMIN [Concomitant]
     Indication: VITAMIN SUPPLEMENTATION
     Route: 048

REACTIONS (1)
  - ABDOMINAL DISCOMFORT [None]
